FAERS Safety Report 24944030 (Version 1)
Quarter: 2025Q1

REPORT INFORMATION
  Report Type: Spontaneous
  Country: GB (occurrence: GB)
  Receive Date: 20250207
  Receipt Date: 20250207
  Transmission Date: 20250409
  Serious: Yes (Disabling, Other)
  Sender: ELI LILLY AND COMPANY
  Company Number: None

PATIENT
  Age: 69 Year
  Sex: Male
  Weight: 80 kg

DRUGS (1)
  1. TALTZ [Suspect]
     Active Substance: IXEKIZUMAB
     Indication: Ankylosing spondylitis
     Dosage: 80 MG, MONTHLY (1/M)
     Route: 065
     Dates: start: 20241015

REACTIONS (25)
  - Ocular hyperaemia [Unknown]
  - Toothache [Not Recovered/Not Resolved]
  - Pharyngeal swelling [Not Recovered/Not Resolved]
  - Dry skin [Not Recovered/Not Resolved]
  - Anosmia [Not Recovered/Not Resolved]
  - Leukoplakia [Not Recovered/Not Resolved]
  - Gingival pain [Not Recovered/Not Resolved]
  - Aphthous ulcer [Recovered/Resolved with Sequelae]
  - Pruritus [Not Recovered/Not Resolved]
  - Eyelid pain [Not Recovered/Not Resolved]
  - Lacrimation increased [Not Recovered/Not Resolved]
  - Ageusia [Not Recovered/Not Resolved]
  - Sinus headache [Not Recovered/Not Resolved]
  - Acne [Not Recovered/Not Resolved]
  - Sinus pain [Not Recovered/Not Resolved]
  - Eye pain [Not Recovered/Not Resolved]
  - Oropharyngeal pain [Not Recovered/Not Resolved]
  - Nasopharyngitis [Not Recovered/Not Resolved]
  - Influenza like illness [Not Recovered/Not Resolved]
  - Urticaria [Not Recovered/Not Resolved]
  - Odynophagia [Unknown]
  - Malaise [Not Recovered/Not Resolved]
  - Fatigue [Not Recovered/Not Resolved]
  - Erythema of eyelid [Unknown]
  - Oral pain [Unknown]

NARRATIVE: CASE EVENT DATE: 20241101
